FAERS Safety Report 18535884 (Version 3)
Quarter: 2020Q4

REPORT INFORMATION
  Report Type: Report from Study
  Country: GR (occurrence: GR)
  Receive Date: 20201123
  Receipt Date: 20201203
  Transmission Date: 20210114
  Serious: Yes (Death, Life-Threatening, Hospitalization, Other)
  Sender: FDA-Public Use
  Company Number: GR-BIOVITRUM-2020GR5855

PATIENT
  Age: 52 Year
  Sex: Male
  Weight: 100 kg

DRUGS (29)
  1. TINZAPARIN [Concomitant]
     Active Substance: TINZAPARIN
     Indication: DEEP VEIN THROMBOSIS
     Route: 058
     Dates: start: 20200731, end: 20200821
  2. ESOMEPRAZOLE. [Concomitant]
     Active Substance: ESOMEPRAZOLE MAGNESIUM
     Indication: PROPHYLAXIS AGAINST GASTROINTESTINAL ULCER
     Route: 042
     Dates: end: 20200807
  3. ESOMEPRAZOLE. [Concomitant]
     Active Substance: ESOMEPRAZOLE MAGNESIUM
     Route: 042
     Dates: start: 20200807, end: 20200821
  4. NORADRENALINE [Concomitant]
     Active Substance: NOREPINEPHRINE
     Indication: HAEMODYNAMIC INSTABILITY
     Dosage: 0.8NG/KG/MIN
     Route: 042
     Dates: start: 20200807
  5. REMDESIVIR. [Concomitant]
     Active Substance: REMDESIVIR
     Indication: COVID-19
     Route: 042
     Dates: start: 20200801
  6. ANIDULAFUNGIN [Concomitant]
     Active Substance: ANIDULAFUNGIN
     Indication: PROPHYLAXIS
     Route: 042
  7. CORTIZOL [Concomitant]
     Indication: PNEUMONIA
     Route: 042
     Dates: start: 20200806
  8. CEFTAZIDIME/AVIBACTAM [Concomitant]
     Active Substance: AVIBACTAM SODIUM\CEFTAZIDIME
     Indication: BACTERIAL INFECTION
     Route: 042
     Dates: start: 20200820, end: 20200821
  9. COLIMYCIN [Concomitant]
     Active Substance: COLISTIMETHATE SODIUM
     Indication: BACTERAEMIA
     Route: 042
     Dates: start: 20200814, end: 20200821
  10. ANAKINRA [Suspect]
     Active Substance: ANAKINRA
  11. LINEZOLID. [Concomitant]
     Active Substance: LINEZOLID
     Indication: PNEUMONIA
     Route: 042
     Dates: start: 20200726
  12. CEFTRIAXONE. [Concomitant]
     Active Substance: CEFTRIAXONE
     Indication: PNEUMONIA
     Route: 042
     Dates: start: 20200726
  13. LOPINAVIR/RITONAVIR [Concomitant]
     Active Substance: LOPINAVIR\RITONAVIR
     Indication: COVID-19
     Route: 048
     Dates: start: 20200726
  14. PROPOFOL. [Concomitant]
     Active Substance: PROPOFOL
     Indication: SEDATION
     Dosage: PRN
     Route: 042
     Dates: start: 20200807
  15. CISATRACURIUM. [Concomitant]
     Active Substance: CISATRACURIUM
     Indication: HYPOTONIA
     Dosage: PRN
     Route: 042
     Dates: start: 20200807
  16. REMIFENTANIL [Concomitant]
     Active Substance: REMIFENTANIL
     Indication: ANALGESIC THERAPY
     Route: 042
     Dates: start: 20200807
  17. ESMOLOL [Concomitant]
     Active Substance: ESMOLOL HYDROCHLORIDE
     Indication: TACHYCARDIA
     Dosage: PRN
     Route: 042
     Dates: start: 20200807
  18. PIPERACILLIN/TAZOBACTAM [Concomitant]
     Active Substance: PIPERACILLIN SODIUM\TAZOBACTAM SODIUM
     Indication: PNEUMONIA
     Route: 042
     Dates: start: 20200801
  19. CORTIZOL [Concomitant]
     Indication: SEPTIC SHOCK
     Route: 042
     Dates: start: 20200807, end: 20200821
  20. PARACETAMOL [Concomitant]
     Active Substance: ACETAMINOPHEN
     Indication: PYREXIA
     Route: 042
     Dates: start: 20200814, end: 20200821
  21. OMEPRAZOLE. [Concomitant]
     Active Substance: OMEPRAZOLE
     Indication: PROPHYLAXIS AGAINST GASTROINTESTINAL ULCER
  22. VASOPRESSIN. [Concomitant]
     Active Substance: VASOPRESSIN
  23. DEXAMETHASONE. [Concomitant]
     Active Substance: DEXAMETHASONE
     Indication: PNEUMONIA
     Route: 042
     Dates: start: 20200726
  24. TOCILIZUMAB. [Concomitant]
     Active Substance: TOCILIZUMAB
     Indication: COVID-19
     Route: 042
     Dates: start: 20200731, end: 20200731
  25. INSULIN [Concomitant]
     Active Substance: INSULIN NOS
     Indication: HYPERGLYCAEMIA
     Route: 042
     Dates: start: 20200807, end: 20200821
  26. METOPROLOL. [Concomitant]
     Active Substance: METOPROLOL
     Dosage: PL ROUTE FOR WEANING FROM IV ADMINISTRATION OF B-BLOCKER
     Dates: start: 20200815, end: 20200821
  27. ANAKINRA [Suspect]
     Active Substance: ANAKINRA
     Indication: COVID-19
     Route: 058
     Dates: start: 20200727, end: 20200805
  28. COTRIMOXAZOLE [Suspect]
     Active Substance: SULFAMETHOXAZOLE\TRIMETHOPRIM
     Indication: PRODUCT USED FOR UNKNOWN INDICATION
     Route: 048
     Dates: start: 20200727, end: 20200805
  29. TIGECYCLIN [Concomitant]
     Active Substance: TIGECYCLINE
     Indication: BACTERAEMIA
     Route: 042
     Dates: start: 20200817, end: 20200821

REACTIONS (8)
  - Thrombocytopenia [Not Recovered/Not Resolved]
  - Gastrointestinal disorder [Recovered/Resolved]
  - Liver function test increased [Not Recovered/Not Resolved]
  - Septic shock [Fatal]
  - Acute respiratory distress syndrome [Not Recovered/Not Resolved]
  - Deep vein thrombosis [Not Recovered/Not Resolved]
  - Haemodynamic instability [Fatal]
  - Anaemia [Not Recovered/Not Resolved]

NARRATIVE: CASE EVENT DATE: 20200731
